FAERS Safety Report 17130468 (Version 1)
Quarter: 2019Q4

REPORT INFORMATION
  Report Type: Spontaneous
  Country: PL (occurrence: PL)
  Receive Date: 20191209
  Receipt Date: 20191209
  Transmission Date: 20200122
  Serious: Yes (Other)
  Sender: FDA-Public Use
  Company Number: PL-COLLEGIUM PHARMACEUTICAL, INC.-PL-2019COL001478

PATIENT
  Age: 55 Year
  Sex: Female

DRUGS (10)
  1. PREGABALIN. [Suspect]
     Active Substance: PREGABALIN
     Indication: NEURALGIA
     Dosage: 75 MG, BID
     Route: 065
  2. NALOXONE [Suspect]
     Active Substance: NALOXONE
     Dosage: 30 MG, BID
     Route: 065
  3. QUTENZA [Concomitant]
     Active Substance: CAPSAICIN
     Indication: PRODUCT USED FOR UNKNOWN INDICATION
     Dosage: UNK
  4. TAPENTADOL [Suspect]
     Active Substance: TAPENTADOL
     Indication: PRODUCT USED FOR UNKNOWN INDICATION
     Dosage: 150 MG, QD
  5. TAPENTADOL [Suspect]
     Active Substance: TAPENTADOL
     Dosage: 100 MG, QD
  6. OXYCODONE [Suspect]
     Active Substance: OXYCODONE
     Dosage: 20 MG, BID
     Route: 065
  7. SEVREDOL [Suspect]
     Active Substance: MORPHINE
     Indication: NEURALGIA
     Dosage: 20 MG, UNK
     Route: 065
  8. NALOXONE [Suspect]
     Active Substance: NALOXONE
     Indication: PRODUCT USED FOR UNKNOWN INDICATION
     Dosage: 10 MG, BID
     Route: 065
  9. OXYCODONE [Suspect]
     Active Substance: OXYCODONE
     Indication: NEURALGIA
     Dosage: 10 MG, BID
     Route: 065
  10. FENTANYL. [Suspect]
     Active Substance: FENTANYL
     Indication: BREAKTHROUGH PAIN
     Dosage: 100 ?G, UNK

REACTIONS (6)
  - Malignant neoplasm progression [Recovering/Resolving]
  - Burning sensation [Unknown]
  - Chest pain [Unknown]
  - Constipation [Unknown]
  - Swelling [Unknown]
  - Pain [Unknown]
